FAERS Safety Report 7759329-1 (Version None)
Quarter: 2011Q3

REPORT INFORMATION
  Report Type: 
  Country: None (occurrence: None)
  Receive Date: 20110919
  Receipt Date: 20110912
  Transmission Date: 20111222
  Serious: Yes (Hospitalization)
  Sender: FDA-Public Use
  Company Number: US-PFIZER INC-2011169956

PATIENT
  Sex: Female

DRUGS (1)
  1. TOVIAZ [Suspect]
     Indication: INCONTINENCE
     Dosage: UNK
     Route: 048
     Dates: start: 20110701

REACTIONS (5)
  - DRUG DISPENSING ERROR [None]
  - DIZZINESS [None]
  - FALL [None]
  - EXPIRED DRUG ADMINISTERED [None]
  - VERTIGO [None]
